FAERS Safety Report 8259626-X (Version None)
Quarter: 2012Q2

REPORT INFORMATION
  Report Type: 
  Country: None (occurrence: None)
  Receive Date: 20120404
  Receipt Date: 20120329
  Transmission Date: 20120825
  Serious: Yes (Hospitalization)
  Sender: FDA-Public Use
  Company Number: PHEH2012US006902

PATIENT
  Sex: Male

DRUGS (7)
  1. ALLOPURINOL [Concomitant]
     Dosage: 300 MG, UNK
  2. CLOZAPINE [Concomitant]
  3. CLOZARIL [Suspect]
     Dosage: 150 MG, UNK
  4. ATIVAN [Suspect]
  5. ZYPREXA [Concomitant]
     Dates: start: 20120322, end: 20120326
  6. LITHIUM CARBONATE [Concomitant]
  7. VITAMIN B COMPLEX CAP [Concomitant]

REACTIONS (8)
  - VOMITING [None]
  - DEHYDRATION [None]
  - SMALL INTESTINAL OBSTRUCTION [None]
  - INTESTINAL OBSTRUCTION [None]
  - MEMORY IMPAIRMENT [None]
  - SPEECH DISORDER [None]
  - ABDOMINAL DISTENSION [None]
  - EATING DISORDER [None]
